FAERS Safety Report 8132919-2 (Version None)
Quarter: 2012Q1

REPORT INFORMATION
  Report Type: 
  Country: None (occurrence: None)
  Receive Date: 20120103
  Receipt Date: 20111012
  Transmission Date: 20120608
  Serious: No
  Sender: FDA-Public Use
  Company Number: AE-2011-001743

PATIENT
  Age: 53 Year
  Sex: Male
  Weight: 108.8633 kg

DRUGS (5)
  1. INCIVEK [Suspect]
     Dosage: 2250 MG (750 MG,3 IN 1 D)
     Dates: start: 20110916
  2. PEGASYS [Concomitant]
  3. ACIPHEX [Concomitant]
  4. RIBAVIRIN [Concomitant]
  5. NAPRASYN (NAPROXEN) [Concomitant]

REACTIONS (4)
  - DIARRHOEA [None]
  - HAEMATOCHEZIA [None]
  - ANORECTAL DISCOMFORT [None]
  - DECREASED APPETITE [None]
